FAERS Safety Report 10457363 (Version 1)
Quarter: 2014Q3

REPORT INFORMATION
  Report Type: Report from Study
  Country: BR (occurrence: BR)
  Receive Date: 20140916
  Receipt Date: 20140916
  Transmission Date: 20150326
  Serious: Yes (Other)
  Sender: FDA-Public Use
  Company Number: BR-BAYER-2014-136870

PATIENT
  Age: 29 Year
  Sex: Female

DRUGS (4)
  1. RETEMIC [Concomitant]
     Active Substance: OXYBUTYNIN
     Indication: URINARY INCONTINENCE
     Dosage: 1 DF, BID
     Route: 048
     Dates: start: 201408
  2. VITAMIN D [Concomitant]
     Active Substance: CHOLECALCIFEROL
     Indication: MULTIPLE SCLEROSIS
     Dosage: 50 GTT, QD
     Route: 048
     Dates: start: 201409
  3. BETAFERON [Suspect]
     Active Substance: INTERFERON BETA-1B
     Indication: PRIMARY PROGRESSIVE MULTIPLE SCLEROSIS
     Dosage: 1 ML, QOD
     Route: 058
     Dates: start: 20140908
  4. BACLOFEN. [Concomitant]
     Active Substance: BACLOFEN
     Indication: MULTIPLE SCLEROSIS
     Dosage: 2 DF, QD
     Route: 048
     Dates: start: 201404

REACTIONS (5)
  - Abasia [Recovered/Resolved]
  - Pyrexia [Recovered/Resolved]
  - Vision blurred [Recovered/Resolved]
  - Adverse event [Recovered/Resolved]
  - Off label use [None]

NARRATIVE: CASE EVENT DATE: 20140910
